FAERS Safety Report 14581311 (Version 1)
Quarter: 2018Q1

REPORT INFORMATION
  Report Type: Spontaneous
  Country: US (occurrence: US)
  Receive Date: 20180228
  Receipt Date: 20180228
  Transmission Date: 20180509
  Serious: Yes (Death, Hospitalization, Other)
  Sender: FDA-Public Use
  Company Number: PHEH2018US007283

PATIENT
  Age: 62 Year
  Sex: Female

DRUGS (5)
  1. PALBOCICLIB [Suspect]
     Active Substance: PALBOCICLIB
     Indication: BREAST CANCER METASTATIC
     Dosage: 125 MG, QD
     Route: 048
     Dates: start: 20171214, end: 20171228
  2. FULVESTRANT. [Suspect]
     Active Substance: FULVESTRANT
     Indication: BREAST CANCER METASTATIC
     Dosage: FULL DOSES
     Route: 065
     Dates: start: 20171214
  3. DENOSUMAB [Suspect]
     Active Substance: DENOSUMAB
     Indication: BREAST CANCER METASTATIC
     Dosage: FULL DOSES
     Route: 065
     Dates: start: 20171214
  4. LETROZOLE. [Suspect]
     Active Substance: LETROZOLE
     Indication: BREAST CANCER METASTATIC
     Dosage: UNK
     Route: 065
     Dates: start: 20160708
  5. DEXAMETHASONE. [Concomitant]
     Active Substance: DEXAMETHASONE
     Indication: PRODUCT USED FOR UNKNOWN INDICATION
     Route: 065

REACTIONS (38)
  - Abdominal pain [Unknown]
  - Hip fracture [Unknown]
  - Tachycardia [Unknown]
  - Intestinal sepsis [Fatal]
  - Pancytopenia [Fatal]
  - Neutropenia [Fatal]
  - Pain [Unknown]
  - Restless legs syndrome [Unknown]
  - Metastases to spine [Unknown]
  - Large intestine perforation [Fatal]
  - Hypocalcaemia [Unknown]
  - Metastases to liver [Unknown]
  - Bone pain [Unknown]
  - Arrhythmia [Unknown]
  - Breast cancer recurrent [Unknown]
  - Duodenal perforation [Fatal]
  - Atrial fibrillation [Fatal]
  - Acetabulum fracture [Unknown]
  - Asthenia [Unknown]
  - Metastases to central nervous system [Unknown]
  - Intestinal perforation [Fatal]
  - Pelvic abscess [Fatal]
  - Radicular pain [Unknown]
  - Tachypnoea [Unknown]
  - Heart rate increased [Unknown]
  - Memory impairment [Unknown]
  - Acute respiratory failure [Fatal]
  - Cardiac arrest [Unknown]
  - Hypophosphataemia [Unknown]
  - Pathological fracture [Unknown]
  - Metastases to bone [Unknown]
  - Hot flush [Unknown]
  - Sepsis [Fatal]
  - Constipation [Unknown]
  - Pyelonephritis [Unknown]
  - Personality change [Unknown]
  - Muscle spasms [Unknown]
  - Hypotension [Unknown]

NARRATIVE: CASE EVENT DATE: 20171127
